FAERS Safety Report 7915164-2 (Version None)
Quarter: 2011Q4

REPORT INFORMATION
  Report Type: 
  Country: None (occurrence: None)
  Receive Date: 20111115
  Receipt Date: 20110807
  Transmission Date: 20120403
  Serious: No
  Sender: FDA-Public Use
  Company Number: US-BAYER-2011-072716

PATIENT
  Sex: Male

DRUGS (3)
  1. EXCEDRIN IB [Concomitant]
  2. IBUPROFEN (ADVIL) [Concomitant]
  3. ALEVE (CAPLET) [Suspect]
     Indication: HEADACHE
     Route: 048

REACTIONS (1)
  - HEADACHE [None]
